FAERS Safety Report 11314328 (Version 2)
Quarter: 2015Q3

REPORT INFORMATION
  Report Type: Spontaneous
  Country: PR (occurrence: US)
  Receive Date: 20150727
  Receipt Date: 20150729
  Transmission Date: 20151125
  Serious: Yes (Other)
  Sender: FDA-Public Use
  Company Number: US-ASTRAZENECA-2015SE72449

PATIENT
  Sex: Female

DRUGS (9)
  1. FASLODEX [Suspect]
     Active Substance: FULVESTRANT
     Route: 030
  2. METFORMIN [Concomitant]
     Active Substance: METFORMIN HYDROCHLORIDE
  3. PRILOSEC [Concomitant]
     Active Substance: OMEPRAZOLE MAGNESIUM
  4. IBRANCE [Concomitant]
     Active Substance: PALBOCICLIB
     Route: 048
  5. DIOVAN [Concomitant]
     Active Substance: VALSARTAN
  6. NAMENDA [Concomitant]
     Active Substance: MEMANTINE HYDROCHLORIDE
  7. FOSAMAX [Concomitant]
     Active Substance: ALENDRONATE SODIUM
  8. ARICEPT [Concomitant]
     Active Substance: DONEPEZIL HYDROCHLORIDE
  9. NORVASC [Concomitant]
     Active Substance: AMLODIPINE BESYLATE

REACTIONS (1)
  - Metastases to skin [Unknown]
